FAERS Safety Report 6834811-X (Version None)
Quarter: 2010Q3

REPORT INFORMATION
  Report Type: 
  Country: None (occurrence: None)
  Receive Date: 20100712
  Receipt Date: 20070417
  Transmission Date: 20110219
  Serious: No
  Sender: FDA-Public Use
  Company Number: US-PFIZER INC-2007028354

PATIENT
  Sex: Female
  Weight: 68.04 kg

DRUGS (14)
  1. CHANTIX [Suspect]
     Indication: SMOKING CESSATION THERAPY
     Dates: start: 20070402
  2. INSULIN [Concomitant]
     Indication: TYPE 1 DIABETES MELLITUS
  3. HUMALOG [Concomitant]
  4. INSPRA [Concomitant]
  5. ATACAND [Concomitant]
  6. SULAR [Concomitant]
  7. NEURONTIN [Concomitant]
  8. KLONOPIN [Concomitant]
  9. PLAQUENIL [Concomitant]
  10. VITAMINS [Concomitant]
  11. COLACE [Concomitant]
  12. TYLENOL (CAPLET) [Concomitant]
  13. SYNTHROID [Concomitant]
  14. ALL OTHER THERAPEUTIC PRODUCTS [Concomitant]

REACTIONS (3)
  - BLOOD GLUCOSE DECREASED [None]
  - STRESS [None]
  - WEIGHT INCREASED [None]
